FAERS Safety Report 13354898 (Version 7)
Quarter: 2017Q2

REPORT INFORMATION
  Report Type: Report from Study
  Country: US (occurrence: US)
  Receive Date: 20170321
  Receipt Date: 20170523
  Transmission Date: 20170830
  Serious: Yes (Hospitalization, Other)
  Sender: FDA-Public Use
  Company Number: US-PFIZER INC-2017074867

PATIENT
  Age: 50 Year
  Sex: Female

DRUGS (2)
  1. IBRANCE [Suspect]
     Active Substance: PALBOCICLIB
     Indication: BREAST CANCER
     Dosage: 125 MG, CYCLIC (DAILY; 3 WEEKS ON/ 1 WEEK OFF )
     Route: 048
     Dates: start: 20170215, end: 20170516
  2. FASLODEX [Concomitant]
     Active Substance: FULVESTRANT
     Dosage: UNK
     Dates: start: 20160208

REACTIONS (19)
  - Liver disorder [Unknown]
  - Neoplasm progression [Unknown]
  - Rash [Recovering/Resolving]
  - Pruritus [Unknown]
  - Fatigue [Recovering/Resolving]
  - Cough [Unknown]
  - Skin ulcer [Unknown]
  - Condition aggravated [Unknown]
  - Leukopenia [Recovering/Resolving]
  - Dry skin [Unknown]
  - Vomiting [Unknown]
  - Pyrexia [Unknown]
  - Bone marrow failure [Unknown]
  - Skin lesion [Unknown]
  - Nausea [Unknown]
  - Urine output decreased [Unknown]
  - Dizziness [Unknown]
  - Abdominal pain [Unknown]
  - Constipation [Recovering/Resolving]
